FAERS Safety Report 11770498 (Version 1)
Quarter: 2015Q4

REPORT INFORMATION
  Report Type: Spontaneous
  Country: US (occurrence: US)
  Receive Date: 20151123
  Receipt Date: 20151123
  Transmission Date: 20160304
  Serious: No
  Sender: FDA-Public Use
  Company Number: ALCN2015US007136

PATIENT
  Sex: Female

DRUGS (2)
  1. ICAPS [Suspect]
     Active Substance: MINERALS\VITAMINS
     Indication: MACULAR DEGENERATION
     Dosage: 1 TABLET, BID
     Route: 048
  2. ICAPS [Suspect]
     Active Substance: MINERALS\VITAMINS
     Dosage: 1 TABLET, QD
     Route: 048

REACTIONS (2)
  - Intentional product use issue [Unknown]
  - Insomnia [Recovered/Resolved]
